FAERS Safety Report 18279354 (Version 1)
Quarter: 2020Q3

REPORT INFORMATION
  Report Type: Spontaneous
  Country: JP (occurrence: JP)
  Receive Date: 20200917
  Receipt Date: 20200917
  Transmission Date: 20201103
  Serious: Yes (Death, Other)
  Sender: FDA-Public Use
  Company Number: JP-BAYER-2020-039488

PATIENT
  Age: 92 Year
  Sex: Male
  Weight: 47.8 kg

DRUGS (10)
  1. FUROSEMIDE. [Concomitant]
     Active Substance: FUROSEMIDE
     Indication: CARDIAC FAILURE CHRONIC
     Dosage: DAILY DOSE 20 MG
     Route: 048
     Dates: end: 20200216
  2. SPIRONOLACTONE. [Concomitant]
     Active Substance: SPIRONOLACTONE
     Indication: HYPERTENSION
  3. DEXAMETHASONE. [Concomitant]
     Active Substance: DEXAMETHASONE
     Indication: PLEURISY
     Dosage: DAILY DOSE 1 MG
     Dates: start: 20200122, end: 20200216
  4. AVELOX [Suspect]
     Active Substance: MOXIFLOXACIN HYDROCHLORIDE
     Indication: PLEURISY
     Dosage: 400 MG, QD
     Route: 048
     Dates: start: 20200122, end: 20200216
  5. SPIRONOLACTONE. [Concomitant]
     Active Substance: SPIRONOLACTONE
     Indication: CARDIAC FAILURE CHRONIC
     Dosage: DAILY DOSE 25 MG
     Route: 048
     Dates: end: 20200216
  6. LINZESS [Concomitant]
     Active Substance: LINACLOTIDE
     Indication: CONSTIPATION
     Dosage: DAILY DOSE .25 MG
     Route: 048
     Dates: start: 20200122, end: 20200216
  7. ELIQUIS [Concomitant]
     Active Substance: APIXABAN
     Indication: ATRIAL FIBRILLATION
     Dosage: DAILY DOSE 50 MG
     Route: 048
     Dates: end: 20200220
  8. LACTULOSE. [Concomitant]
     Active Substance: LACTULOSE
     Indication: CONSTIPATION
     Dosage: DAILY DOSE 60 ML
     Route: 048
     Dates: start: 20200120, end: 20200216
  9. FUROSEMIDE. [Concomitant]
     Active Substance: FUROSEMIDE
     Indication: HYPERTENSION
  10. LANSOPRAZOLE. [Concomitant]
     Active Substance: LANSOPRAZOLE
     Indication: GASTRITIS PROPHYLAXIS
     Dosage: DAILY DOSE 15 MG
     Route: 048
     Dates: start: 20200114, end: 20200220

REACTIONS (13)
  - Rhabdomyolysis [Recovered/Resolved]
  - Rash [Fatal]
  - Penile erosion [Fatal]
  - Blister [Fatal]
  - Flushing [Fatal]
  - Eye discharge [Fatal]
  - Nikolsky^s sign [Fatal]
  - Toxic epidermal necrolysis [Fatal]
  - Respiratory disorder [Fatal]
  - Erythema multiforme [Fatal]
  - Asthenia [Fatal]
  - Conjunctival hyperaemia [Fatal]
  - Lip erosion [Fatal]

NARRATIVE: CASE EVENT DATE: 20200210
